FAERS Safety Report 24190860 (Version 1)
Quarter: 2024Q3

REPORT INFORMATION
  Report Type: Spontaneous
  Country: US (occurrence: None)
  Receive Date: 20240808
  Receipt Date: 20240808
  Transmission Date: 20241016
  Serious: Yes (Life-Threatening, Hospitalization, Disabling)
  Sender: Public
  Company Number: None

PATIENT
  Age: 82 Year
  Sex: Male
  Weight: 68 kg

DRUGS (13)
  1. HYDRALAZINE [Suspect]
     Active Substance: HYDRALAZINE HYDROCHLORIDE
     Indication: Hypertension
     Dosage: FREQUENCY : 3 TIMES A DAY;?
     Route: 048
     Dates: start: 20210905, end: 20240807
  2. AMLODIPINE [Concomitant]
     Active Substance: AMLODIPINE BESYLATE
     Dates: start: 20210910
  3. ASPIRIN [Concomitant]
     Active Substance: ASPIRIN
  4. ATORVASTATIN [Concomitant]
     Active Substance: ATORVASTATIN
     Dates: start: 20211025
  5. CARVEDILOL [Concomitant]
     Active Substance: CARVEDILOL
     Dates: start: 20211022
  6. FEBUXOSTAT [Concomitant]
     Active Substance: FEBUXOSTAT
     Dates: start: 20211017
  7. COLCHICINE [Concomitant]
     Active Substance: COLCHICINE
     Dates: start: 20230601
  8. escitaloprm [Concomitant]
     Dates: start: 20211108
  9. FESOTERODINE [Concomitant]
     Active Substance: FESOTERODINE
     Dates: start: 20220926, end: 20221026
  10. FINASTERIDE [Concomitant]
     Active Substance: FINASTERIDE
     Dates: start: 20220112
  11. LEUPROLIDE [Concomitant]
     Active Substance: LEUPROLIDE
  12. LEVOTHYROXINE [Concomitant]
     Active Substance: LEVOTHYROXINE\LEVOTHYROXINE SODIUM
     Dates: start: 20211025
  13. SILODOSIN [Concomitant]
     Active Substance: SILODOSIN
     Dates: start: 20210818, end: 20221223

REACTIONS (7)
  - Haemoptysis [None]
  - Anaemia [None]
  - Haemodialysis [None]
  - Glomerulonephritis rapidly progressive [None]
  - Cough [None]
  - Weight decreased [None]
  - Anti-neutrophil cytoplasmic antibody positive vasculitis [None]

NARRATIVE: CASE EVENT DATE: 20240727
